FAERS Safety Report 9082760 (Version 1)
Quarter: 2013Q1

REPORT INFORMATION
  Report Type: Spontaneous
  Country: US (occurrence: US)
  Receive Date: 20130131
  Receipt Date: 20130131
  Transmission Date: 20140127
  Serious: No
  Sender: FDA-Public Use
  Company Number: US-ABBOTT-12P-163-0990049-00

PATIENT
  Age: 48 Year
  Sex: Female
  Weight: 69.46 kg

DRUGS (3)
  1. HUMIRA [Suspect]
     Indication: PSORIASIS
     Dates: start: 201109
  2. ESTRAGEL [Concomitant]
     Indication: HORMONE REPLACEMENT THERAPY
  3. ZOLOFT [Concomitant]
     Indication: DEPRESSION

REACTIONS (1)
  - Sinusitis [Not Recovered/Not Resolved]
